FAERS Safety Report 7306465-X (Version None)
Quarter: 2011Q1

REPORT INFORMATION
  Report Type: 
  Country: None (occurrence: None)
  Receive Date: 20110222
  Receipt Date: 20110215
  Transmission Date: 20110831
  Serious: Yes (Death, Other)
  Sender: FDA-Public Use
  Company Number: US-GENZYME-FABR-1001802

PATIENT

DRUGS (3)
  1. DIABETES MEDICATION (NOS) [Concomitant]
     Indication: DIABETES MELLITUS
  2. FABRAZYME [Suspect]
     Indication: FABRY'S DISEASE
     Dosage: 35 MG, UNK
     Route: 042
     Dates: end: 20110203
  3. FABRAZYME [Suspect]
     Dosage: 70 MG, QW
     Route: 042
     Dates: start: 20040501

REACTIONS (2)
  - BRAIN OEDEMA [None]
  - CEREBROVASCULAR ACCIDENT [None]
